FAERS Safety Report 6166578-5 (Version None)
Quarter: 2009Q2

REPORT INFORMATION
  Report Type: 
  Country: None (occurrence: None)
  Receive Date: 20090424
  Receipt Date: 20090422
  Transmission Date: 20091009
  Serious: Yes (Death)
  Sender: FDA-Public Use
  Company Number: US-ASTRAZENECA-2009AC01141

PATIENT
  Age: 24 Year
  Sex: Female
  Weight: 62.6 kg

DRUGS (1)
  1. PROPOFOL [Suspect]
     Route: 042

REACTIONS (2)
  - DRUG TOXICITY [None]
  - OVERDOSE [None]
